FAERS Safety Report 12348989 (Version 4)
Quarter: 2016Q4

REPORT INFORMATION
  Report Type: Spontaneous
  Country: US (occurrence: US)
  Receive Date: 20160509
  Receipt Date: 20161206
  Transmission Date: 20170207
  Serious: Yes (Hospitalization, Other)
  Sender: FDA-Public Use
  Company Number: US-TAKEDA-2016TUS007228

PATIENT
  Age: 34 Year
  Sex: Female
  Weight: 91.8 kg

DRUGS (10)
  1. TYLENOL [Concomitant]
     Active Substance: ACETAMINOPHEN
     Indication: PRODUCT USED FOR UNKNOWN INDICATION
     Dosage: UNK, QD
     Route: 048
     Dates: start: 20150312
  2. CALCIUM [Concomitant]
     Active Substance: CALCIUM
     Indication: PARATHYROID DISORDER
     Dosage: 4000 ?G, UNK
     Route: 048
     Dates: start: 20160719
  3. PERCOCET [Concomitant]
     Active Substance: ACETAMINOPHEN\OXYCODONE HYDROCHLORIDE
     Indication: PAIN
     Dosage: UNK
     Route: 048
     Dates: start: 20160721, end: 20160731
  4. ENTYVIO [Suspect]
     Active Substance: VEDOLIZUMAB
     Indication: CROHN^S DISEASE
  5. NOVOLOG [Concomitant]
     Active Substance: INSULIN ASPART
     Indication: TYPE 1 DIABETES MELLITUS
     Dosage: UNK
     Route: 050
     Dates: start: 20160312
  6. VITAFUSION PRENATAL [Concomitant]
     Dosage: UNK
     Route: 048
     Dates: start: 20160312
  7. INSULIN [Concomitant]
     Active Substance: INSULIN NOS
     Indication: TYPE 1 DIABETES MELLITUS
     Dosage: UNK
  8. ENTYVIO [Suspect]
     Active Substance: VEDOLIZUMAB
     Indication: COLITIS ULCERATIVE
     Dosage: 300 MG, UNK
     Route: 042
     Dates: start: 20160101
  9. AZATHIOPRINE. [Concomitant]
     Active Substance: AZATHIOPRINE
     Dosage: 150 MG, UNK
     Route: 048
     Dates: start: 20160312, end: 20160616
  10. ASACOL HD [Concomitant]
     Active Substance: MESALAMINE
     Dosage: 2400 MG, UNK
     Route: 048
     Dates: start: 20160312, end: 20160606

REACTIONS (6)
  - Nasopharyngitis [Recovered/Resolved]
  - Colitis ulcerative [Unknown]
  - Abdominal pain [Recovered/Resolved]
  - Crohn^s disease [Unknown]
  - Pregnancy [Unknown]
  - Thyroid cancer [Unknown]

NARRATIVE: CASE EVENT DATE: 20160401
